FAERS Safety Report 20457032 (Version 1)
Quarter: 2022Q1

REPORT INFORMATION
  Report Type: Spontaneous
  Country: US (occurrence: US)
  Receive Date: 20220210
  Receipt Date: 20220210
  Transmission Date: 20220423
  Serious: No
  Sender: FDA-Public Use
  Company Number: US-PERRIGO-21US002360

PATIENT
  Age: 58 Year
  Sex: Female
  Weight: 81.633 kg

DRUGS (7)
  1. CETIRIZINE HYDROCHLORIDE [Suspect]
     Active Substance: CETIRIZINE HYDROCHLORIDE
     Indication: Urticaria
     Dosage: 10 MG, BID
     Route: 048
     Dates: start: 20210205, end: 20210212
  2. CETIRIZINE HYDROCHLORIDE [Suspect]
     Active Substance: CETIRIZINE HYDROCHLORIDE
     Indication: Pruritus
  3. CERAVE HEALING [Suspect]
     Active Substance: PETROLATUM
     Indication: Urticaria
     Dosage: GENEROUS AMOUNT, BID
     Route: 061
  4. CERAVE HEALING [Suspect]
     Active Substance: PETROLATUM
     Indication: Pruritus
  5. TRIAMCINOLONE ACETONIDE [Suspect]
     Active Substance: TRIAMCINOLONE ACETONIDE
     Indication: Urticaria
     Dosage: GENEROUS AMOUNT, BID
     Route: 061
     Dates: start: 20210204, end: 20210209
  6. TRIAMCINOLONE ACETONIDE [Suspect]
     Active Substance: TRIAMCINOLONE ACETONIDE
     Indication: Pruritus
  7. UNSPECIFIED INGREDIENT [Concomitant]
     Active Substance: UNSPECIFIED INGREDIENT
     Indication: Hypothyroidism
     Dosage: 30 MG, UNKNOWN
     Route: 065
     Dates: start: 1998

REACTIONS (5)
  - Condition aggravated [Not Recovered/Not Resolved]
  - Inflammation [Not Recovered/Not Resolved]
  - Hypersensitivity [Not Recovered/Not Resolved]
  - Off label use [Recovered/Resolved]
  - Inappropriate schedule of product administration [Recovered/Resolved]

NARRATIVE: CASE EVENT DATE: 20210204
